FAERS Safety Report 22012837 (Version 1)
Quarter: 2023Q1

REPORT INFORMATION
  Report Type: Report from Study
  Country: IT (occurrence: IT)
  Receive Date: 20230220
  Receipt Date: 20230220
  Transmission Date: 20230418
  Serious: Yes (Hospitalization)
  Sender: FDA-Public Use
  Company Number: None

PATIENT
  Age: 91 Year
  Sex: Male

DRUGS (9)
  1. RIVAROXABAN [Interacting]
     Active Substance: RIVAROXABAN
     Indication: Thrombosis prophylaxis
     Dosage: DOSAGGIO: 1UNITA DI MISURA: UNITA POSOLOGICAFREQUENZA SOMMINISTRAZIONE: QUOTIDIANAVIA SOMMINISTRAZIO
     Route: 048
  2. AMIODARONE [Interacting]
     Active Substance: AMIODARONE
     Indication: Hypertension
     Dosage: DOSAGGIO: 1UNITA DI MISURA: UNITA POSOLOGICAFREQUENZA SOMMINISTRAZIONE: QUOTIDIANAVIA SOMMINISTRAZIO
     Route: 048
  3. ATROPINA SOLFATO [Concomitant]
     Indication: Glaucoma
     Dosage: DOSAGGIO: 1UNITA DI MISURA: UNITA POSOLOGICAVIA SOMMINISTRAZIONE: OFTALMICA
     Route: 047
  4. RIFAXIMIN [Concomitant]
     Active Substance: RIFAXIMIN
     Dosage: DOSAGGIO: 200UNITA DI MISURA: MILLIGRAMMI
  5. LANTUS [Concomitant]
     Active Substance: INSULIN GLARGINE
     Indication: Type 2 diabetes mellitus
     Dosage: DOSAGGIO: 1UNITA DI MISURA: UNITA POSOLOGICAVIA SOMMINISTRAZIONE: SOTTOCUTANEA
     Route: 058
  6. AZARGA [Concomitant]
     Active Substance: BRINZOLAMIDE\TIMOLOL MALEATE
     Indication: Glaucoma
     Dosage: DOSAGGIO: 1UNITA DI MISURA: UNITA POSOLOGICAVIA SOMMINISTRAZIONE: OFTALMICA
     Route: 047
  7. ATORVASTATINA [ATORVASTATIN CALCIUM] [Concomitant]
     Indication: Hypercholesterolaemia
     Dosage: DOSAGGIO: 10UNITA DI MISURA: MILLIGRAMMIVIA SOMMINISTRAZIONE: ORALE
     Route: 048
  8. LANSOPRAZOLE [Concomitant]
     Active Substance: LANSOPRAZOLE
     Indication: Dyspepsia
     Dosage: DOSAGGIO: 15UNITA DI MISURA: MILLIGRAMMIVIA SOMMINISTRAZIONE: ORALE
     Route: 048
  9. FUROSEMIDE [Concomitant]
     Active Substance: FUROSEMIDE
     Indication: Hypertension
     Dosage: DOSAGGIO: 25UNITA DI MISURA: MILLIGRAMMIVIA SOMMINISTRAZIONE: ORALE
     Route: 048

REACTIONS (3)
  - Rectal haemorrhage [Recovering/Resolving]
  - Anaemia [Recovering/Resolving]
  - Drug interaction [Unknown]

NARRATIVE: CASE EVENT DATE: 20220711
